FAERS Safety Report 7248084-X (Version None)
Quarter: 2011Q1

REPORT INFORMATION
  Report Type: 
  Country: None (occurrence: None)
  Receive Date: 20110127
  Receipt Date: 20100601
  Transmission Date: 20110831
  Serious: No
  Sender: FDA-Public Use
  Company Number: US-MYLANLABS-2010S1009836

PATIENT
  Age: 43 Year
  Sex: Male

DRUGS (7)
  1. CLOZAPINE [Concomitant]
  2. COGENTIN [Concomitant]
  3. CRESTOR [Concomitant]
  4. CLONAZEPAM [Concomitant]
  5. VALPROIC ACID [Concomitant]
  6. PHENYTOIN SODIUM CAP [Suspect]
     Indication: CONVULSION
     Route: 048
     Dates: start: 20100502
  7. PHENYTOIN SODIUM CAP [Suspect]
     Route: 048
     Dates: start: 20100502

REACTIONS (1)
  - DRUG LEVEL BELOW THERAPEUTIC [None]
